FAERS Safety Report 18847141 (Version 17)
Quarter: 2025Q1

REPORT INFORMATION
  Report Type: Spontaneous
  Country: US (occurrence: US)
  Receive Date: 20210204
  Receipt Date: 20250206
  Transmission Date: 20250409
  Serious: No
  Sender: PFIZER
  Company Number: US-PFIZER INC-2020485635

PATIENT
  Age: 48 Year
  Sex: Female
  Weight: 92.99 kg

DRUGS (14)
  1. IBRANCE [Suspect]
     Active Substance: PALBOCICLIB
     Indication: Breast cancer
     Route: 048
     Dates: start: 20170414
  2. IBRANCE [Suspect]
     Active Substance: PALBOCICLIB
     Indication: Metastases to bone
     Route: 048
     Dates: start: 20210430
  3. IBRANCE [Suspect]
     Active Substance: PALBOCICLIB
  4. IBRANCE [Suspect]
     Active Substance: PALBOCICLIB
     Route: 048
  5. IBRANCE [Suspect]
     Active Substance: PALBOCICLIB
     Route: 048
  6. IBRANCE [Suspect]
     Active Substance: PALBOCICLIB
     Dosage: 100 MG, 3X/DAY
  7. IBRANCE [Suspect]
     Active Substance: PALBOCICLIB
     Route: 048
  8. IBRANCE [Suspect]
     Active Substance: PALBOCICLIB
     Route: 048
  9. LETROZOLE [Concomitant]
     Active Substance: LETROZOLE
     Indication: Breast cancer metastatic
     Dosage: 2.5 MG, DAILY
     Route: 048
     Dates: start: 201704
  10. LETROZOLE [Concomitant]
     Active Substance: LETROZOLE
     Indication: Metastases to bone
  11. XGEVA [Concomitant]
     Active Substance: DENOSUMAB
     Indication: Bone disorder
     Dates: start: 201704
  12. LEUPROLIDE ACETATE [Concomitant]
     Active Substance: LEUPROLIDE ACETATE
     Dates: start: 201704
  13. LUPRON [Concomitant]
     Active Substance: LEUPROLIDE ACETATE
     Indication: Therapeutic ovarian suppression
     Dates: start: 20170407
  14. DENOSUMAB [Concomitant]
     Active Substance: DENOSUMAB
     Dates: start: 20170414

REACTIONS (34)
  - COVID-19 [Unknown]
  - Malaise [Recovering/Resolving]
  - Hyperaesthesia [Recovering/Resolving]
  - Toothache [Recovering/Resolving]
  - Mastication disorder [Recovering/Resolving]
  - Arthralgia [Recovering/Resolving]
  - Head discomfort [Recovering/Resolving]
  - Hot flush [Recovering/Resolving]
  - Gait disturbance [Unknown]
  - Muscle spasms [Unknown]
  - Illness [Unknown]
  - Productive cough [Not Recovered/Not Resolved]
  - Hepatic steatosis [Unknown]
  - Gastrooesophageal reflux disease [Unknown]
  - Axillary pain [Unknown]
  - Pain [Unknown]
  - Visual impairment [Unknown]
  - Nasopharyngitis [Not Recovered/Not Resolved]
  - Asthenia [Unknown]
  - Pyrexia [Recovered/Resolved]
  - Musculoskeletal stiffness [Recovered/Resolved]
  - Fatigue [Recovered/Resolved]
  - Cough [Unknown]
  - Nasal congestion [Unknown]
  - Gastrointestinal disorder [Unknown]
  - Glycosylated haemoglobin increased [Unknown]
  - Mean cell volume increased [Unknown]
  - Lymphocyte count decreased [Unknown]
  - Monocyte count decreased [Unknown]
  - Basophil count increased [Unknown]
  - White blood cell count decreased [Unknown]
  - Product dose omission in error [Unknown]
  - Product prescribing issue [Unknown]
  - Off label use [Unknown]

NARRATIVE: CASE EVENT DATE: 20170101
